FAERS Safety Report 16196941 (Version 1)
Quarter: 2019Q2

REPORT INFORMATION
  Report Type: Spontaneous
  Country: SE (occurrence: SE)
  Receive Date: 20190415
  Receipt Date: 20190415
  Transmission Date: 20190711
  Serious: Yes (Hospitalization)
  Sender: FDA-Public Use
  Company Number: SE-BAYER-SE-2005-002014

PATIENT
  Age: 36 Year
  Sex: Male

DRUGS (1)
  1. BETAFERON [Suspect]
     Active Substance: INTERFERON BETA-1B
     Indication: MULTIPLE SCLEROSIS
     Dosage: UNK, UNK
     Route: 058
     Dates: start: 1996, end: 2004

REACTIONS (4)
  - Inflammation [Unknown]
  - Abscess soft tissue [Recovered/Resolved]
  - Skin reaction [Unknown]
  - Scar [Unknown]

NARRATIVE: CASE EVENT DATE: 2003
